FAERS Safety Report 18012728 (Version 1)
Quarter: 2020Q3

REPORT INFORMATION
  Report Type: Report from Study
  Country: IT (occurrence: IT)
  Receive Date: 20200713
  Receipt Date: 20200713
  Transmission Date: 20201103
  Serious: Yes (Other)
  Sender: FDA-Public Use
  Company Number: IT-JNJFOC-20200710527

PATIENT

DRUGS (10)
  1. CYCLOPHOSPHAMIDE. [Concomitant]
     Active Substance: CYCLOPHOSPHAMIDE
  2. REMICADE [Suspect]
     Active Substance: INFLIXIMAB
     Indication: COLITIS ULCERATIVE
     Route: 042
  3. METHOTREXATE. [Concomitant]
     Active Substance: METHOTREXATE
  4. CYCLOSPORIN [Concomitant]
     Active Substance: CYCLOSPORINE
  5. AZATHIOPRINE. [Concomitant]
     Active Substance: AZATHIOPRINE
  6. REMICADE [Suspect]
     Active Substance: INFLIXIMAB
     Indication: CROHN^S DISEASE
  7. MERCAPTOPURINE. [Concomitant]
     Active Substance: MERCAPTOPURINE
  8. SIMPONI [Suspect]
     Active Substance: GOLIMUMAB
     Indication: CROHN^S DISEASE
     Route: 058
  9. SIMPONI [Suspect]
     Active Substance: GOLIMUMAB
     Indication: COLITIS ULCERATIVE
  10. SULFASALAZINE. [Concomitant]
     Active Substance: SULFASALAZINE

REACTIONS (41)
  - Tachycardia [Unknown]
  - Tonsillitis [Unknown]
  - Gingivitis [Unknown]
  - Erythema [Unknown]
  - Oedema peripheral [Unknown]
  - Headache [Unknown]
  - Nausea [Unknown]
  - Arthralgia [Unknown]
  - Leukocytosis [Unknown]
  - Limb discomfort [Unknown]
  - Nasopharyngitis [Unknown]
  - Hyperhidrosis [Unknown]
  - Hot flush [Unknown]
  - Injection site reaction [Unknown]
  - Drug ineffective [Unknown]
  - Abdominal pain [Unknown]
  - Dyspepsia [Unknown]
  - Paraesthesia [Unknown]
  - Urticaria [Unknown]
  - Herpes virus infection [Unknown]
  - Back pain [Unknown]
  - Pyrexia [Unknown]
  - Dyspnoea [Unknown]
  - Confusional state [Unknown]
  - Tooth loss [Unknown]
  - Dry eye [Unknown]
  - Chest pain [Unknown]
  - Pruritus [Unknown]
  - Rash [Unknown]
  - Subcutaneous abscess [Unknown]
  - Libido decreased [Unknown]
  - Cytomegalovirus infection [Unknown]
  - Pityriasis [Unknown]
  - Asthenia [Unknown]
  - White blood cell disorder [Unknown]
  - Somnolence [Unknown]
  - Lymphadenopathy [Unknown]
  - Hypersensitivity [Unknown]
  - Myalgia [Unknown]
  - Vertigo [Unknown]
  - Vomiting [Unknown]
